FAERS Safety Report 10172108 (Version 2)
Quarter: 2014Q2

REPORT INFORMATION
  Report Type: Spontaneous
  Country: US (occurrence: US)
  Receive Date: 20140515
  Receipt Date: 20140529
  Transmission Date: 20141212
  Serious: Yes (Hospitalization)
  Sender: FDA-Public Use
  Company Number: US-MERCK-1405USA004662

PATIENT
  Age: 59 Year
  Sex: Male

DRUGS (1)
  1. PEGINTRON [Suspect]
     Indication: HEPATITIS C
     Dosage: 150 MICROGRAM, QW
     Route: 058
     Dates: start: 201402, end: 2014

REACTIONS (3)
  - Hospitalisation [Unknown]
  - Haemoglobin abnormal [Unknown]
  - Dyspnoea [Unknown]
